FAERS Safety Report 8023378-9 (Version None)
Quarter: 2012Q1

REPORT INFORMATION
  Report Type: 
  Country: None (occurrence: None)
  Receive Date: 20120104
  Receipt Date: 20120104
  Transmission Date: 20120608
  Serious: Yes (Hospitalization, Other)
  Sender: FDA-Public Use
  Company Number: EC-PFIZER INC-2011286990

PATIENT
  Age: 67 Year
  Sex: Male

DRUGS (3)
  1. MICARDIS [Concomitant]
     Indication: HYPERTENSION
     Dosage: UNK
     Route: 048
  2. LATANOPROST [Suspect]
     Dosage: UNK
     Route: 047
     Dates: start: 20110501
  3. LOPID [Suspect]
     Indication: DYSLIPIDAEMIA
     Dosage: UNK
     Route: 048

REACTIONS (2)
  - CYCLITIS [None]
  - CATARACT OPERATION [None]
